FAERS Safety Report 16890020 (Version 1)
Quarter: 2019Q4

REPORT INFORMATION
  Report Type: Spontaneous
  Country: US (occurrence: US)
  Receive Date: 20191002
  Receipt Date: 20191002
  Transmission Date: 20200122
  Serious: Yes (Hospitalization)
  Sender: FDA-Public Use
  Company Number: None

PATIENT
  Age: 72 Year
  Sex: Female
  Weight: 45.9 kg

DRUGS (1)
  1. DIABETES + ENHANCE KIDNEY FORMULA, NATURAL HERBS DIETARY SUPPLEMENT [Suspect]
     Active Substance: DIETARY SUPPLEMENT\HERBALS
     Indication: DIABETES MELLITUS
     Dosage: ?          QUANTITY:3 TABLET(S);?
     Route: 048
     Dates: start: 20190301, end: 20190811

REACTIONS (7)
  - Cerebrovascular accident [None]
  - Blood glucose increased [None]
  - Dyspnoea [None]
  - Chest pain [None]
  - Gait inability [None]
  - Dysarthria [None]
  - Dizziness [None]

NARRATIVE: CASE EVENT DATE: 20190823
